FAERS Safety Report 5001642-5 (Version None)
Quarter: 2006Q2

REPORT INFORMATION
  Report Type: 
  Country: None (occurrence: None)
  Receive Date: 20060515
  Receipt Date: 20060503
  Transmission Date: 20061013
  Serious: Yes (Other)
  Sender: FDA-Public Use
  Company Number: US-BRISTOL-MYERS SQUIBB COMPANY-13366398

PATIENT

DRUGS (1)
  1. PARAPLATIN [Suspect]

REACTIONS (2)
  - DEPRESSION [None]
  - PSYCHOTIC DISORDER [None]
